FAERS Safety Report 21185960 (Version 3)
Quarter: 2022Q3

REPORT INFORMATION
  Report Type: Report from Study
  Country: US (occurrence: US)
  Receive Date: 20220808
  Receipt Date: 20220817
  Transmission Date: 20221027
  Serious: No
  Sender: FDA-Public Use
  Company Number: US-BIOVITRUM-2022US09184

PATIENT
  Age: 56 Year
  Sex: Female

DRUGS (20)
  1. KINERET [Suspect]
     Active Substance: ANAKINRA
     Indication: Still^s disease
     Dates: start: 20220720
  2. TRAMADOL [Concomitant]
     Active Substance: TRAMADOL
  3. ARIMIDEX [Concomitant]
     Active Substance: ANASTROZOLE
  4. LOPERAMIDE [Concomitant]
     Active Substance: LOPERAMIDE
  5. PLAQUENIL [Concomitant]
     Active Substance: HYDROXYCHLOROQUINE SULFATE
  6. ELAVIL [Concomitant]
     Active Substance: AMITRIPTYLINE HYDROCHLORIDE
  7. VITAMIN K [Concomitant]
     Active Substance: PHYTONADIONE
  8. ZINC [Concomitant]
     Active Substance: ZINC
  9. VITAMIN D [Concomitant]
     Active Substance: VITAMIN D NOS
  10. VITAMIN A [Concomitant]
     Active Substance: VITAMIN A
  11. MOTRIN [Concomitant]
     Active Substance: IBUPROFEN
  12. BENTYL [Concomitant]
     Active Substance: DICYCLOMINE HYDROCHLORIDE
  13. COPPER GLUCONATE [Concomitant]
     Active Substance: COPPER GLUCONATE
  14. GABAPENTIN [Concomitant]
     Active Substance: GABAPENTIN
  15. KCL [Concomitant]
     Active Substance: POTASSIUM CHLORIDE
  16. PREDNISONE [Concomitant]
     Active Substance: PREDNISONE
  17. VITAMIN E [Concomitant]
     Active Substance: .ALPHA.-TOCOPHEROL
  18. CALCIUM CITRATE [Concomitant]
     Active Substance: CALCIUM CITRATE
  19. LEVOTHYROXINE [Concomitant]
     Active Substance: LEVOTHYROXINE
  20. ANASTROZOLE [Concomitant]
     Active Substance: ANASTROZOLE

REACTIONS (6)
  - Pyrexia [Unknown]
  - Injection site pain [Unknown]
  - Injection site mass [Unknown]
  - Injection site erythema [Unknown]
  - Injection site pruritus [Unknown]
  - Off label use [Not Recovered/Not Resolved]

NARRATIVE: CASE EVENT DATE: 20220720
